FAERS Safety Report 12513137 (Version 3)
Quarter: 2016Q4

REPORT INFORMATION
  Report Type: Spontaneous
  Country: US (occurrence: US)
  Receive Date: 20160630
  Receipt Date: 20161104
  Transmission Date: 20170207
  Serious: Yes (Death, Hospitalization)
  Sender: FDA-Public Use
  Company Number: US-JNJFOC-20160525970

PATIENT
  Age: 87 Year
  Sex: Male

DRUGS (2)
  1. XARELTO [Suspect]
     Active Substance: RIVAROXABAN
     Indication: PULMONARY EMBOLISM
     Dosage: THE PATIENT WAS TREATED WITH 15 MG - TWICE PER DAY AND THEN 20 MG - ONCE PER DAY (SAMPLES).
     Route: 048
     Dates: start: 20160212, end: 20160308
  2. XARELTO [Suspect]
     Active Substance: RIVAROXABAN
     Indication: DEEP VEIN THROMBOSIS
     Dosage: THE PATIENT WAS TREATED WITH 15 MG - TWICE PER DAY AND THEN 20 MG - ONCE PER DAY (SAMPLES).
     Route: 048
     Dates: start: 20160212, end: 20160308

REACTIONS (1)
  - Gastrointestinal haemorrhage [Fatal]

NARRATIVE: CASE EVENT DATE: 20160308
